FAERS Safety Report 8522763-6 (Version None)
Quarter: 2012Q3

REPORT INFORMATION
  Report Type: 
  Country: None (occurrence: None)
  Receive Date: 20120719
  Receipt Date: 20120717
  Transmission Date: 20120928
  Serious: Yes (Hospitalization, Other)
  Sender: FDA-Public Use
  Company Number: AU-B.I. PHARMACEUTICALS,INC./RIDGEFIELD-2012-AU-01262AU

PATIENT
  Sex: Female

DRUGS (3)
  1. ENBREL [Concomitant]
     Indication: RHEUMATOID ARTHRITIS
     Dosage: 7.1429 MG
     Route: 058
  2. MOBIC [Suspect]
     Indication: RHEUMATOID ARTHRITIS
     Dosage: 15 MG
     Route: 048
  3. METHOTREXATE [Concomitant]
     Indication: RHEUMATOID ARTHRITIS
     Dosage: 2.8571 MG
     Route: 048

REACTIONS (1)
  - RENAL FAILURE ACUTE [None]
